FAERS Safety Report 7104989-1 (Version None)
Quarter: 2010Q4

REPORT INFORMATION
  Report Type: 
  Country: None (occurrence: None)
  Receive Date: 20101110
  Receipt Date: 20101105
  Transmission Date: 20110411
  Serious: Yes (Other)
  Sender: FDA-Public Use
  Company Number: TRP_07376_2010

PATIENT
  Sex: Female

DRUGS (4)
  1. INFERGEN [Suspect]
     Indication: HEPATITIS C
     Dosage: (9 ?G QD SUBCUTANEOUS)
     Route: 058
     Dates: start: 20101104
  2. RIBASPHERE [Suspect]
     Indication: HEPATITIS C
     Dosage: (1000 MG, DAILY ORAL)
     Route: 048
     Dates: start: 20101104
  3. COUMADIN [Concomitant]
  4. ATENOLOL [Concomitant]

REACTIONS (6)
  - CHILLS [None]
  - DARK CIRCLES UNDER EYES [None]
  - FATIGUE [None]
  - MALAISE [None]
  - PALLOR [None]
  - PYREXIA [None]
